FAERS Safety Report 15140507 (Version 1)
Quarter: 2018Q3

REPORT INFORMATION
  Report Type: Spontaneous
  Country: US (occurrence: US)
  Receive Date: 20180713
  Receipt Date: 20180713
  Transmission Date: 20181010
  Serious: Yes (Other)
  Sender: FDA-Public Use
  Company Number: US-PFIZER INC-2018276322

PATIENT
  Sex: Female

DRUGS (1)
  1. CHAPSTICK CLASSIC CHERRY [Suspect]
     Active Substance: PETROLATUM
     Dosage: UNK

REACTIONS (1)
  - Coeliac disease [Unknown]
